FAERS Safety Report 8123385-1 (Version None)
Quarter: 2012Q1

REPORT INFORMATION
  Report Type: 
  Country: None (occurrence: None)
  Receive Date: 20120208
  Receipt Date: 20120207
  Transmission Date: 20120608
  Serious: No
  Sender: FDA-Public Use
  Company Number: US-PFIZER INC-2012033575

PATIENT
  Sex: Female
  Weight: 81.633 kg

DRUGS (4)
  1. LITHIUM [Concomitant]
     Indication: BIPOLAR DISORDER
     Dosage: UNK
  2. GEODON [Suspect]
     Indication: SCHIZOAFFECTIVE DISORDER
     Dosage: 160 MG, 1X/DAY
     Route: 048
     Dates: start: 20070101
  3. LAMICTAL [Concomitant]
     Indication: BIPOLAR DISORDER
     Dosage: UNK
  4. LAMICTAL [Concomitant]
     Indication: SCHIZOAFFECTIVE DISORDER

REACTIONS (4)
  - DISTURBANCE IN ATTENTION [None]
  - VISION BLURRED [None]
  - VERTIGO [None]
  - BALANCE DISORDER [None]
